FAERS Safety Report 9983277 (Version 1)
Quarter: 2014Q1

REPORT INFORMATION
  Report Type: Spontaneous
  Country: IT (occurrence: IT)
  Receive Date: 20140307
  Receipt Date: 20140307
  Transmission Date: 20141002
  Serious: Yes (Other)
  Sender: FDA-Public Use
  Company Number: IT-ABBVIE-14P-083-1209773-00

PATIENT
  Age: 58 Year
  Sex: Female

DRUGS (6)
  1. KLACID [Suspect]
     Indication: BRONCHITIS
     Route: 048
  2. CARDIOASPIRIN [Concomitant]
     Indication: PRODUCT USED FOR UNKNOWN INDICATION
  3. TAREG [Concomitant]
     Indication: PRODUCT USED FOR UNKNOWN INDICATION
  4. LOBIVON [Concomitant]
     Indication: PRODUCT USED FOR UNKNOWN INDICATION
  5. CRESTOR [Concomitant]
     Indication: PRODUCT USED FOR UNKNOWN INDICATION
  6. ESKIM [Concomitant]
     Indication: PRODUCT USED FOR UNKNOWN INDICATION

REACTIONS (1)
  - Bronchospasm [Unknown]
